FAERS Safety Report 6034697-X (Version None)
Quarter: 2009Q1

REPORT INFORMATION
  Report Type: 
  Country: None (occurrence: None)
  Receive Date: 20090112
  Receipt Date: 20090107
  Transmission Date: 20090719
  Serious: Yes (Death, Life-Threatening, Other)
  Sender: FDA-Public Use
  Company Number: ES-ABBOTT-09P-144-0496066-00

PATIENT
  Age: 60 Year
  Sex: Male

DRUGS (1)
  1. SEVORANE LIQUID FOR INHALATION [Suspect]
     Indication: SPINAL DECOMPRESSION
     Route: 055
     Dates: start: 20081201, end: 20081201

REACTIONS (3)
  - HEPATITIS FULMINANT [None]
  - LIVER FUNCTION TEST ABNORMAL [None]
  - THROMBOCYTOPENIA [None]
